FAERS Safety Report 21257888 (Version 1)
Quarter: 2022Q3

REPORT INFORMATION
  Report Type: Report from Study
  Country: IN (occurrence: IN)
  Receive Date: 20220826
  Receipt Date: 20220826
  Transmission Date: 20221026
  Serious: Yes (Death)
  Sender: FDA-Public Use
  Company Number: IN-NOVARTISPH-NVSC2021IN259893

PATIENT
  Age: 74 Year
  Sex: Female

DRUGS (4)
  1. CERITINIB [Suspect]
     Active Substance: CERITINIB
     Indication: Non-small cell lung cancer
     Dosage: 450 MG, QD
     Route: 048
     Dates: start: 20211012
  2. CERITINIB [Suspect]
     Active Substance: CERITINIB
     Dosage: 150 MG, QD
     Route: 065
     Dates: start: 20211012, end: 20211106
  3. CERITINIB [Suspect]
     Active Substance: CERITINIB
     Dosage: 300 MG, QD
     Route: 065
     Dates: start: 20211107, end: 20220227
  4. CERITINIB [Suspect]
     Active Substance: CERITINIB
     Dosage: 150 MG, QD (ALTERNATE DAYS)
     Route: 048
     Dates: start: 20220228

REACTIONS (6)
  - Non-small cell lung cancer [Fatal]
  - Malignant neoplasm progression [Fatal]
  - Constipation [Recovered/Resolved]
  - Asthenia [Not Recovered/Not Resolved]
  - Inappropriate schedule of product administration [Unknown]
  - Product use issue [Unknown]

NARRATIVE: CASE EVENT DATE: 20211107
